FAERS Safety Report 12012403 (Version 1)
Quarter: 2016Q1

REPORT INFORMATION
  Report Type: Report from Study
  Country: BR (occurrence: BR)
  Receive Date: 20160205
  Receipt Date: 20160205
  Transmission Date: 20160526
  Serious: Yes (Hospitalization, Disabling)
  Sender: FDA-Public Use
  Company Number: BR-GLAXOSMITHKLINE-BR2016GSK016609

PATIENT
  Age: 55 Year
  Sex: Female
  Weight: 55 kg

DRUGS (1)
  1. FLUTICASONE FUROATE + VILANTEROL TRIFENATATE [Suspect]
     Active Substance: FLUTICASONE FUROATE\VILANTEROL TRIFENATATE
     Indication: LUNG DISORDER
     Dosage: UNK
     Route: 055

REACTIONS (3)
  - Lung disorder [Unknown]
  - Chest pain [Unknown]
  - Respiratory disorder [Unknown]

NARRATIVE: CASE EVENT DATE: 20160130
